FAERS Safety Report 7580113-6 (Version None)
Quarter: 2011Q2

REPORT INFORMATION
  Report Type: 
  Country: None (occurrence: None)
  Receive Date: 20110629
  Receipt Date: 20110627
  Transmission Date: 20111010
  Serious: Yes (Death)
  Sender: FDA-Public Use
  Company Number: ES-ELI_LILLY_AND_COMPANY-ES201106007365

PATIENT
  Age: 42 Year
  Sex: Female

DRUGS (3)
  1. LITHIUM CARBONATE [Concomitant]
     Indication: BIPOLAR I DISORDER
     Dosage: 800 MG, UNK
     Dates: start: 20060718
  2. QUETIAPINE [Concomitant]
     Indication: BIPOLAR I DISORDER
     Dosage: 200 MG, UNK
     Dates: start: 20060718
  3. ZYPREXA [Suspect]
     Indication: BIPOLAR I DISORDER
     Dosage: 20 MG, UNK
     Route: 048
     Dates: start: 20081110

REACTIONS (2)
  - DEATH [None]
  - CARDIAC ARREST [None]
